FAERS Safety Report 23058247 (Version 3)
Quarter: 2023Q4

REPORT INFORMATION
  Report Type: Spontaneous
  Country: US (occurrence: US)
  Receive Date: 20231012
  Receipt Date: 20231114
  Transmission Date: 20240110
  Serious: Yes (Disabling, Other)
  Sender: FDA-Public Use
  Company Number: US-REGENERON PHARMACEUTICALS, INC.-2023-123504

PATIENT
  Sex: Female

DRUGS (16)
  1. EYLEA [Suspect]
     Active Substance: AFLIBERCEPT
     Indication: Retinal vein occlusion
     Dosage: 2 MG, EVERY 8 TO 9 WEEKS INTO LEFT EYE (STRENGTH: 2MG/0.05ML; FORMULATION: PFS GERRESHEIMER)
     Dates: end: 20231031
  2. EYLEA [Suspect]
     Active Substance: AFLIBERCEPT
     Indication: Macular oedema
  3. DUREZOL [Concomitant]
     Active Substance: DIFLUPREDNATE
     Indication: Product used for unknown indication
     Dosage: 0.05%, 1 GTT QDAY OS
     Route: 031
  4. CYCLOGYL [Concomitant]
     Active Substance: CYCLOPENTOLATE HYDROCHLORIDE
     Indication: Product used for unknown indication
     Dosage: EYE DROPS
  5. ELIQUIS [Concomitant]
     Active Substance: APIXABAN
     Indication: Product used for unknown indication
     Dosage: 5 MG, 1 TABLET, BID
     Route: 048
  6. FAMOTIDINE [Concomitant]
     Active Substance: FAMOTIDINE
     Indication: Product used for unknown indication
     Dosage: 40 MG, 1 TABLET, QDAY
     Route: 048
  7. LOSARTAN POTASSIUM [Concomitant]
     Active Substance: LOSARTAN POTASSIUM
     Indication: Product used for unknown indication
     Dosage: 25 MG, 1 TABLET QDAY
     Route: 048
  8. METOPROLOL SUCCINATE [Concomitant]
     Active Substance: METOPROLOL SUCCINATE
     Indication: Product used for unknown indication
     Dosage: 25 MG,  1 TABLET QDAY
     Route: 048
  9. SYNTHROID [Concomitant]
     Active Substance: LEVOTHYROXINE SODIUM
     Indication: Product used for unknown indication
     Dosage: 75 MCG, 1 TABLET QDAY
     Route: 048
  10. FISH OIL [Concomitant]
     Active Substance: FISH OIL
     Indication: Product used for unknown indication
     Dosage: 1 BY MOUTH ONCE A DAY
     Route: 048
  11. SYSTANE (HYPROMELLOSE 2910 (4000 MPA.S)) [Concomitant]
     Active Substance: HYPROMELLOSE 2910 (4000 MPA.S)
     Indication: Product used for unknown indication
     Dosage: 1 GTT, QAM, OU
     Route: 031
  12. SYSTANE (HYPROMELLOSE 2910 (4000 MPA.S)) [Concomitant]
     Active Substance: HYPROMELLOSE 2910 (4000 MPA.S)
     Dosage: 1 GTT, AS NECESSARY (PRN), OU
     Route: 031
  13. MOXIFLOXACIN [Concomitant]
     Active Substance: MOXIFLOXACIN
     Indication: Product used for unknown indication
     Dosage: 1 GTT, BID OS
     Route: 031
  14. CYCLOPENTOLATE [Concomitant]
     Active Substance: CYCLOPENTOLATE
     Indication: Product used for unknown indication
     Dosage: 1 GTT, BID OS
     Route: 031
  15. PREDNISONE [Concomitant]
     Active Substance: PREDNISONE
     Indication: Product used for unknown indication
     Dosage: 6 TABLET QDAY (THEN 5 TAB A DAY FOR 1 WEEK, THEN 4 TAB A DAY FOR 1 WEEK, THEN 3 TAB A DAY)
     Route: 048
  16. HYPERTONICITY OPHTHALMIC [Concomitant]
     Indication: Product used for unknown indication
     Dosage: 1 INCH QHS IN LEFT EYE (OS)
     Route: 031

REACTIONS (16)
  - Blindness unilateral [Not Recovered/Not Resolved]
  - Choroidal detachment [Recovered/Resolved]
  - Arteriosclerotic retinopathy [Unknown]
  - Vitreous degeneration [Unknown]
  - Hypotony of eye [Unknown]
  - Non-infectious endophthalmitis [Recovered/Resolved]
  - Retinal detachment [Recovered/Resolved]
  - Retinal tear [Recovered/Resolved]
  - Cataract nuclear [Unknown]
  - Balance disorder [Unknown]
  - Musculoskeletal pain [Unknown]
  - Pseudophakia [Unknown]
  - Headache [Unknown]
  - Foveal reflex abnormal [Unknown]
  - Vision blurred [Unknown]
  - Lacrimation increased [Unknown]

NARRATIVE: CASE EVENT DATE: 20230101
